FAERS Safety Report 5247271-X (Version None)
Quarter: 2007Q1

REPORT INFORMATION
  Report Type: 
  Country: None (occurrence: None)
  Receive Date: 20070227
  Receipt Date: 20070212
  Transmission Date: 20070707
  Serious: Yes (Hospitalization, Other)
  Sender: FDA-Public Use
  Company Number: PHHO2007DE03012

PATIENT
  Age: 56 Year
  Sex: Female
  Weight: 99 kg

DRUGS (3)
  1. OCTREOTIDE WITH POLY(D L-LACTIDE-CO-GLYC [Suspect]
     Indication: ACROMEGALY
     Dosage: 30MG MONTHLY
     Route: 030
     Dates: start: 20061122
  2. DOSTINEX [Suspect]
     Indication: ACROMEGALY
     Dosage: 0.5MG/DAY (3.5MG/WK)
     Route: 048
     Dates: start: 20061122, end: 20070210
  3. DOSTINEX [Suspect]
     Dosage: 2MG/WK
     Route: 048
     Dates: start: 20070215

REACTIONS (2)
  - ADHESION [None]
  - EPISTAXIS [None]
